FAERS Safety Report 16119137 (Version 1)
Quarter: 2019Q1

REPORT INFORMATION
  Report Type: Spontaneous
  Country: US (occurrence: US)
  Receive Date: 20190326
  Receipt Date: 20190326
  Transmission Date: 20190418
  Serious: Yes (Other)
  Sender: FDA-Public Use
  Company Number: US-ALLERGAN-1912627US

PATIENT
  Sex: Female

DRUGS (2)
  1. GONADOTROPIN-RELEASING HORMONES [Suspect]
     Active Substance: GONADORELIN
     Indication: LUTEAL PHASE DEFICIENCY
     Route: 065
  2. PROGESTERONE UNK [Suspect]
     Active Substance: PROGESTERONE
     Indication: LUTEAL PHASE DEFICIENCY
     Route: 067

REACTIONS (1)
  - Ovarian hyperstimulation syndrome [Unknown]
